FAERS Safety Report 5190046-0 (Version None)
Quarter: 2006Q4

REPORT INFORMATION
  Report Type: 
  Country: None (occurrence: None)
  Receive Date: 20061215
  Receipt Date: 20061207
  Transmission Date: 20070319
  Serious: Yes (Death)
  Sender: FDA-Public Use
  Company Number: T200601420

PATIENT
  Age: 68 Year
  Sex: Male

DRUGS (1)
  1. OPTIJECT 350 (IOVERSOL) INJECTION 350 [Suspect]
     Indication: AORTOGRAM
     Dosage: 120 ML, SINGLE, INTRAVENOUS
     Route: 042
     Dates: start: 20061121, end: 20061121

REACTIONS (1)
  - DEATH [None]
